FAERS Safety Report 4772366-4 (Version None)
Quarter: 2005Q3

REPORT INFORMATION
  Report Type: 
  Country: None (occurrence: None)
  Receive Date: 20050919
  Receipt Date: 20041201
  Transmission Date: 20060218
  Serious: No
  Sender: FDA-Public Use
  Company Number: US-BRISTOL-MYERS SQUIBB COMPANY-12782140

PATIENT
  Age: 57 Year
  Sex: Male
  Weight: 64 kg

DRUGS (1)
  1. KENALOG-40 [Suspect]
     Indication: SKIN LESION
     Route: 030
     Dates: start: 19720101, end: 19850201

REACTIONS (1)
  - CONNECTIVE TISSUE DISORDER [None]
